FAERS Safety Report 10564219 (Version 7)
Quarter: 2015Q1

REPORT INFORMATION
  Report Type: Spontaneous
  Country: US (occurrence: US)
  Receive Date: 20141104
  Receipt Date: 20150115
  Transmission Date: 20150720
  Serious: Yes (Hospitalization)
  Sender: FDA-Public Use
  Company Number: US-UNITED THERAPEUTICS-UNT-2014-008337

PATIENT
  Age: 69 Year
  Sex: Female
  Weight: 59.86 kg

DRUGS (4)
  1. REMODULIN [Suspect]
     Active Substance: TREPROSTINIL
     Indication: COR PULMONALE CHRONIC
     Dosage: 0.064 ?G/KG, CONTINUING
     Route: 058
     Dates: start: 20120228
  2. REMODULIN [Suspect]
     Active Substance: TREPROSTINIL
     Indication: PULMONARY HYPERTENSION
     Dosage: 0.064 ?G/KG, CONTINUING
     Route: 058
     Dates: start: 20120321
  3. REMODULIN [Suspect]
     Active Substance: TREPROSTINIL
     Dosage: 0.064 ?G/KG, CONTINUING
     Route: 058
     Dates: start: 20120508
  4. REMODULIN [Suspect]
     Active Substance: TREPROSTINIL
     Dosage: 0.064 ?G/KG, CONTINUING
     Route: 058
     Dates: start: 20120321

REACTIONS (9)
  - Influenza like illness [Unknown]
  - Gastrooesophageal reflux disease [Unknown]
  - Pneumonia [Unknown]
  - Bronchitis viral [Unknown]
  - Injection site discharge [Unknown]
  - Infusion site pain [Unknown]
  - Infusion site infection [Unknown]
  - Infusion site nodule [Unknown]
  - Infusion site induration [Unknown]

NARRATIVE: CASE EVENT DATE: 2014
